FAERS Safety Report 22182593 (Version 1)
Quarter: 2023Q2

REPORT INFORMATION
  Report Type: Spontaneous
  Country: US (occurrence: US)
  Receive Date: 20230406
  Receipt Date: 20230406
  Transmission Date: 20230721
  Serious: No
  Sender: FDA-Public Use
  Company Number: US-MYLANLABS-2023M1033475

PATIENT
  Sex: Female
  Weight: 89.81 kg

DRUGS (1)
  1. SEMGLEE (INSULIN GLARGINE-YFGN) [Suspect]
     Active Substance: INSULIN GLARGINE-YFGN
     Indication: Type 2 diabetes mellitus
     Dosage: 40 INTERNATIONAL UNIT, QD
     Route: 058
     Dates: start: 20230309

REACTIONS (3)
  - Hypophagia [Recovered/Resolved]
  - Blood glucose increased [Recovered/Resolved]
  - Device defective [Unknown]
